FAERS Safety Report 7641689-3 (Version None)
Quarter: 2011Q3

REPORT INFORMATION
  Report Type: 
  Country: None (occurrence: None)
  Receive Date: 20110728
  Receipt Date: 20110718
  Transmission Date: 20111222
  Serious: Yes (Hospitalization)
  Sender: FDA-Public Use
  Company Number: FR-GLAXOSMITHKLINE-B0733538A

PATIENT
  Sex: Male

DRUGS (7)
  1. ONDANSERTRON HYDROCHLORIDE [Suspect]
     Indication: NAUSEA
     Dosage: 8MG PER DAY
     Route: 048
     Dates: start: 20110608, end: 20110610
  2. PREDNISONE [Concomitant]
     Dosage: 12.5MG PER DAY
     Route: 048
  3. OMEPRAZOLE [Concomitant]
     Dosage: 20MG PER DAY
     Route: 048
  4. DILTIAZEM HCL [Concomitant]
     Dosage: 200MG PER DAY
     Route: 048
  5. VIDAZA [Suspect]
     Route: 042
     Dates: start: 20110608, end: 20110610
  6. CLONAZEPAM [Concomitant]
     Dosage: 7DROP PER DAY
     Route: 048
  7. CACIT VITAMINE D3 [Concomitant]
     Dosage: 1UNIT PER DAY
     Route: 048

REACTIONS (2)
  - MYOCARDIAL INFARCTION [None]
  - CHEST PAIN [None]
